FAERS Safety Report 6507672-6 (Version None)
Quarter: 2009Q4

REPORT INFORMATION
  Report Type: 
  Country: None (occurrence: None)
  Receive Date: 20091221
  Receipt Date: 20091214
  Transmission Date: 20100525
  Serious: Yes (Other)
  Sender: FDA-Public Use
  Company Number: US-BAYER-200917558BCC

PATIENT
  Age: 84 Year
  Sex: Male
  Weight: 79 kg

DRUGS (3)
  1. ALEVE (CAPLET) [Suspect]
     Indication: PAIN IN EXTREMITY
     Dosage: TOTAL DAILY DOSE: 440 MG  UNIT DOSE: 220 MG
     Route: 048
     Dates: end: 20060101
  2. ALEVE (CAPLET) [Suspect]
     Route: 048
  3. BLOOD PRESSURE MEDICATION [Concomitant]
     Route: 065

REACTIONS (1)
  - RENAL DISORDER [None]
